FAERS Safety Report 5341578-3 (Version None)
Quarter: 2007Q2

REPORT INFORMATION
  Report Type: 
  Country: None (occurrence: None)
  Receive Date: 20070601
  Receipt Date: 20070522
  Transmission Date: 20071010
  Serious: Yes (Hospitalization, Other)
  Sender: FDA-Public Use
  Company Number: HQWYE307522MAY07

PATIENT
  Age: 65 Year
  Sex: Male

DRUGS (4)
  1. AMIODARONE HCL [Suspect]
     Indication: ATRIAL FIBRILLATION
     Route: 048
     Dates: start: 20020101, end: 20020101
  2. AMIODARONE HCL [Suspect]
     Route: 048
     Dates: start: 20020101, end: 20030101
  3. LANOXIN [Concomitant]
     Indication: ATRIAL FIBRILLATION
     Dosage: 0.375 MG, FREQUENCY UNSPECIFIED
     Route: 048
     Dates: start: 20020101, end: 20020101
  4. DOPAMINE HCL [Concomitant]
     Indication: SEPTIC SHOCK

REACTIONS (5)
  - CONDITION AGGRAVATED [None]
  - HYPOPROTEINAEMIA [None]
  - HYPOTHYROIDISM [None]
  - PLEURAL EFFUSION [None]
  - WOUND SECRETION [None]
